FAERS Safety Report 11106657 (Version 1)
Quarter: 2015Q2

REPORT INFORMATION
  Report Type: Spontaneous
  Country: US (occurrence: US)
  Receive Date: 20150512
  Receipt Date: 20150512
  Transmission Date: 20150821
  Serious: No
  Sender: FDA-Public Use
  Company Number: US-PFIZER INC-2015152220

PATIENT
  Sex: Female

DRUGS (1)
  1. ADVIL PM [Suspect]
     Active Substance: DIPHENHYDRAMINE CITRATE\IBUPROFEN
     Dosage: UNK

REACTIONS (7)
  - Eye pruritus [Unknown]
  - Swollen tongue [Unknown]
  - Speech disorder [Unknown]
  - Erythema [Unknown]
  - Nervousness [Unknown]
  - Hypersensitivity [Unknown]
  - Intentional product misuse [Unknown]
